FAERS Safety Report 23428933 (Version 1)
Quarter: 2024Q1

REPORT INFORMATION
  Report Type: Spontaneous
  Country: GB (occurrence: GB)
  Receive Date: 20240122
  Receipt Date: 20240122
  Transmission Date: 20240410
  Serious: Yes (Other)
  Sender: FDA-Public Use
  Company Number: GB-GUERBET / GUERBET LABORATORIES-GB-20240004

PATIENT
  Age: 40 Year
  Sex: Male
  Weight: 65.2 kg

DRUGS (3)
  1. OPTIRAY 350 [Suspect]
     Active Substance: IOVERSOL
     Indication: Computerised tomogram
     Route: 042
     Dates: start: 20240103, end: 20240103
  2. SODIUM CHLORIDE [Concomitant]
     Active Substance: SODIUM CHLORIDE
     Indication: Product used for unknown indication
     Dosage: PRE SCAN.
     Route: 042
     Dates: start: 20240103, end: 20240103
  3. SODIUM CHLORIDE [Concomitant]
     Active Substance: SODIUM CHLORIDE
     Dosage: POST SCAN.
     Route: 042
     Dates: start: 20240103, end: 20240103

REACTIONS (1)
  - Air embolism [Unknown]

NARRATIVE: CASE EVENT DATE: 20240103
